FAERS Safety Report 4554811-2 (Version None)
Quarter: 2005Q1

REPORT INFORMATION
  Report Type: 
  Country: None (occurrence: None)
  Receive Date: 20050114
  Receipt Date: 20040614
  Transmission Date: 20050727
  Serious: Yes (Life-Threatening, Hospitalization, Disabling)
  Sender: FDA-Public Use
  Company Number: GXKR2004FR00600

PATIENT
  Age: 26 Year
  Sex: Male

DRUGS (1)
  1. IBUPROFEN [Suspect]
     Indication: ANALGESIC EFFECT
     Dosage: 1 G/DAILY
     Dates: start: 20010909, end: 20010918

REACTIONS (22)
  - ABSCESS JAW [None]
  - APHASIA [None]
  - BACTERIAL INFECTION [None]
  - BRAIN ABSCESS [None]
  - BRAIN COMPRESSION [None]
  - BRAIN OEDEMA [None]
  - CEREBRAL VENTRICLE DILATATION [None]
  - CONFUSIONAL STATE [None]
  - DISORIENTATION [None]
  - DYSAESTHESIA [None]
  - HEMIPLEGIA [None]
  - LUNG ABSCESS [None]
  - PARAPHARYNGEAL ABSCESS [None]
  - POST PROCEDURAL CELLULITIS [None]
  - POST PROCEDURAL COMPLICATION [None]
  - POST PROCEDURAL PAIN [None]
  - PYREXIA [None]
  - SENSORY DISTURBANCE [None]
  - SOMNOLENCE [None]
  - STREPTOCOCCAL INFECTION [None]
  - SUBDURAL EMPYEMA [None]
  - TRISMUS [None]
